FAERS Safety Report 7292759-3 (Version None)
Quarter: 2011Q1

REPORT INFORMATION
  Report Type: 
  Country: None (occurrence: None)
  Receive Date: 20110210
  Receipt Date: 20110210
  Transmission Date: 20110831
  Serious: Yes (Hospitalization)
  Sender: FDA-Public Use
  Company Number: None

PATIENT
  Age: 59 Year
  Sex: Male
  Weight: 104 kg

DRUGS (1)
  1. NORTRIPTYLINE HCL [Suspect]
     Indication: DEPRESSION
     Dosage: 25 MG TID PO
     Route: 048
     Dates: start: 20100820, end: 20100927

REACTIONS (1)
  - PALPITATIONS [None]
